FAERS Safety Report 11258143 (Version 2)
Quarter: 2015Q4

REPORT INFORMATION
  Report Type: Spontaneous
  Country: RU (occurrence: RU)
  Receive Date: 20150710
  Receipt Date: 20151206
  Transmission Date: 20160304
  Serious: Yes (Life-Threatening, Other)
  Sender: FDA-Public Use
  Company Number: RU-ASTRAZENECA-2015SE65462

PATIENT
  Age: 32 Year
  Sex: Female

DRUGS (4)
  1. FORXIGA [Suspect]
     Active Substance: DAPAGLIFLOZIN
     Indication: TYPE 2 DIABETES MELLITUS
     Route: 048
  2. LANTUS [Concomitant]
     Active Substance: INSULIN GLARGINE
     Dosage: 20-22
  3. INSULIN [Concomitant]
     Active Substance: INSULIN NOS
  4. INSULIN ASPART [Concomitant]
     Active Substance: INSULIN ASPART
     Dosage: 8-10, 3 TIMES A DAY

REACTIONS (3)
  - Ketoacidosis [Recovered/Resolved]
  - Off label use [Unknown]
  - Product use issue [Unknown]
